FAERS Safety Report 5507213-6 (Version None)
Quarter: 2007Q4

REPORT INFORMATION
  Report Type: 
  Country: None (occurrence: None)
  Receive Date: 20071102
  Receipt Date: 20071022
  Transmission Date: 20080405
  Serious: Yes (Hospitalization)
  Sender: FDA-Public Use
  Company Number: 2007SP021821

PATIENT
  Sex: Male

DRUGS (3)
  1. PROVENTIL-HFA [Suspect]
     Indication: ASBESTOSIS
     Dosage: ; PO
     Route: 048
  2. PROVENTIL-HFA [Suspect]
     Indication: EMPHYSEMA
     Dosage: ; PO
     Route: 048
  3. PROVENTIL /00139501/ [Concomitant]

REACTIONS (6)
  - CONDITION AGGRAVATED [None]
  - DYSPNOEA [None]
  - HEADACHE [None]
  - NAUSEA [None]
  - PALPITATIONS [None]
  - PHARMACEUTICAL PRODUCT COMPLAINT [None]
